FAERS Safety Report 5379945-4 (Version None)
Quarter: 2007Q3

REPORT INFORMATION
  Report Type: 
  Country: None (occurrence: None)
  Receive Date: 20070706
  Receipt Date: 20070629
  Transmission Date: 20080115
  Serious: Yes (Hospitalization, Other)
  Sender: FDA-Public Use
  Company Number: JP-BAYER-200710388BYL

PATIENT
  Age: 68 Year
  Sex: Female
  Weight: 51 kg

DRUGS (12)
  1. AVELOX [Suspect]
     Indication: PNEUMONIA
     Dosage: TOTAL DAILY DOSE: 400 MG  UNIT DOSE: 400 MG
     Route: 048
     Dates: start: 20070528, end: 20070530
  2. DASEN [Concomitant]
     Indication: PNEUMONIA
     Dosage: TOTAL DAILY DOSE: 30 MG  UNIT DOSE: 10 MG
     Route: 048
     Dates: start: 20070521, end: 20070531
  3. HUSTAZOL [Concomitant]
     Indication: PNEUMONIA
     Dosage: TOTAL DAILY DOSE: 30 MG  UNIT DOSE: 10 MG
     Route: 048
     Dates: start: 20070528, end: 20070531
  4. SEVEN EP [Concomitant]
     Indication: CHOLECYSTECTOMY
     Route: 048
     Dates: start: 20070528, end: 20070531
  5. URSOSAN [Concomitant]
     Indication: CHOLECYSTECTOMY
     Dosage: TOTAL DAILY DOSE: 300 MG  UNIT DOSE: 100 MG
     Route: 048
     Dates: start: 20011110
  6. SELBEX [Concomitant]
     Indication: GASTRITIS
     Dosage: TOTAL DAILY DOSE: 150 MG  UNIT DOSE: 50 MG
     Route: 048
     Dates: start: 20020225
  7. LIPITOR [Concomitant]
     Indication: HYPERCHOLESTEROLAEMIA
     Dosage: TOTAL DAILY DOSE: 10 MG  UNIT DOSE: 10 MG
     Route: 048
     Dates: start: 20000828
  8. TAGAMET [Concomitant]
     Indication: GASTRITIS
     Dosage: TOTAL DAILY DOSE: 400 MG  UNIT DOSE: 200 MG
     Route: 048
     Dates: start: 20030317
  9. CIPROFLOXACIN [Concomitant]
     Indication: PNEUMONIA
     Route: 048
     Dates: start: 20070522, end: 20070527
  10. SIGMART [Concomitant]
     Indication: ANGINA PECTORIS
     Dosage: TOTAL DAILY DOSE: 7.5 MG  UNIT DOSE: 2.5 MG
     Route: 048
     Dates: start: 20070530, end: 20070531
  11. BANAN [Concomitant]
     Indication: PNEUMONIA
     Dosage: TOTAL DAILY DOSE: 200 MG  UNIT DOSE: 100 MG
     Route: 048
     Dates: start: 20070521, end: 20070522
  12. PERSANTIN [Concomitant]
     Indication: MYOCARDIAL ISCHAEMIA
     Dosage: TOTAL DAILY DOSE: 75 MG  UNIT DOSE: 12.5 MG
     Route: 048
     Dates: start: 19980202

REACTIONS (1)
  - ANGINA PECTORIS [None]
